APPROVED DRUG PRODUCT: BENZTROPINE MESYLATE
Active Ingredient: BENZTROPINE MESYLATE
Strength: 2MG
Dosage Form/Route: TABLET;ORAL
Application: A212694 | Product #003 | TE Code: AA
Applicant: QUAGEN PHARMACEUTICALS LLC
Approved: Feb 11, 2025 | RLD: No | RS: No | Type: RX